FAERS Safety Report 19938968 (Version 3)
Quarter: 2021Q4

REPORT INFORMATION
  Report Type: Spontaneous
  Country: ES (occurrence: ES)
  Receive Date: 20211011
  Receipt Date: 20211222
  Transmission Date: 20220303
  Serious: Yes (Other)
  Sender: FDA-Public Use
  Company Number: ES-002147023-NVSC2021ES138940

PATIENT
  Age: 71 Year
  Sex: Male

DRUGS (1)
  1. ADALIMUMAB [Suspect]
     Active Substance: ADALIMUMAB
     Indication: Psoriasis
     Dosage: 40 MILLIGRAM, Q2W
     Route: 065
     Dates: start: 201907, end: 2020

REACTIONS (1)
  - Cutaneous leishmaniasis [Recovered/Resolved]

NARRATIVE: CASE EVENT DATE: 20191001
